FAERS Safety Report 8810752 (Version 2)
Quarter: 2014Q1

REPORT INFORMATION
  Report Type: Spontaneous
  Country: US (occurrence: US)
  Receive Date: 20120927
  Receipt Date: 20140306
  Transmission Date: 20141002
  Serious: No
  Sender: FDA-Public Use
  Company Number: US-PFIZER INC-2012239345

PATIENT
  Age: 35 Year
  Sex: Female
  Weight: 155.56 kg

DRUGS (11)
  1. LYRICA [Suspect]
     Indication: FIBROMYALGIA
     Dosage: 75 MG, 4X/DAY
     Route: 048
     Dates: start: 201110
  2. LYRICA [Suspect]
     Dosage: 75 MG, 2X/DAY
     Route: 048
  3. PROZAC [Concomitant]
     Indication: DEPRESSION
     Dosage: 20 MG, 1X/DAY
     Route: 048
  4. FLEXERIL [Concomitant]
     Dosage: 10 MG, 1X/DAY
     Route: 048
  5. ATIVAN [Concomitant]
     Indication: ANXIETY
     Dosage: 1 MG, 1X/DAY
     Route: 048
  6. BENTYL [Concomitant]
     Dosage: 10 MG, 1X/DAY
  7. TRAZODONE [Concomitant]
     Indication: SLEEP DISORDER
     Dosage: 100 MG, 1X/DAY AT BEDTIME
     Route: 048
  8. ATORVASTATIN [Concomitant]
     Indication: BLOOD CHOLESTEROL INCREASED
     Dosage: 10 MG, DAILY (1 TABLET EVERY DAY)
     Route: 048
  9. DICYCLOMINE [Concomitant]
     Indication: MUSCLE RELAXANT THERAPY
     Dosage: 20 MG, DAILY (1 TABLET EVERY DAY)
     Route: 048
  10. ATENOLOL [Concomitant]
     Indication: HEART RATE INCREASED
     Dosage: 25 MG, DAILY (ONE TABLET  EVERY DAY)
     Route: 048
  11. TRAMADOL/ACETAMINOPHEN [Concomitant]
     Indication: PAIN
     Dosage: UNK TRAMADOL (37.7 MG) ACETAMINOPHEN (325 MG) ONE TABLET THREE TIMES DAILY AS NEEDED
     Route: 048

REACTIONS (1)
  - Nasopharyngitis [Recovered/Resolved]
